FAERS Safety Report 11312387 (Version 1)
Quarter: 2015Q3

REPORT INFORMATION
  Report Type: Spontaneous
  Country: US (occurrence: None)
  Receive Date: 20150724
  Receipt Date: 20150724
  Transmission Date: 20151125
  Serious: Yes (Other)
  Sender: FDA-Public Use
  Company Number: None

PATIENT
  Age: 38 Year
  Sex: Female
  Weight: 147.42 kg

DRUGS (5)
  1. ESCITALOPRAM 20MG AUR [Suspect]
     Active Substance: ESCITALOPRAM OXALATE
     Indication: PANIC ATTACK
     Route: 048
     Dates: start: 20150501, end: 20150722
  2. ESCITALOPRAM 20MG AUR [Suspect]
     Active Substance: ESCITALOPRAM OXALATE
     Indication: GENERALISED ANXIETY DISORDER
     Route: 048
     Dates: start: 20150501, end: 20150722
  3. LEXAPRO [Concomitant]
     Active Substance: ESCITALOPRAM OXALATE
  4. CLAIRITAN [Concomitant]
  5. MULTI-VITAMIN [Concomitant]
     Active Substance: .ALPHA.-TOCOPHEROL ACETATE, DL-\ASCORBIC ACID\CYANOCOBALAMIN\FLUORIDE ION\FOLIC ACID\NIACIN\PYRIDOXINE\RIBOFLAVIN\THIAMINE\VITAMIN A\VITAMIN D

REACTIONS (9)
  - Condition aggravated [None]
  - Anxiety [None]
  - Product substitution issue [None]
  - Hypoaesthesia [None]
  - Palpitations [None]
  - Panic attack [None]
  - Mental disorder [None]
  - Emotional disorder [None]
  - Dyspnoea [None]

NARRATIVE: CASE EVENT DATE: 20150722
